FAERS Safety Report 7326319-2 (Version None)
Quarter: 2011Q1

REPORT INFORMATION
  Report Type: 
  Country: None (occurrence: None)
  Receive Date: 20110302
  Receipt Date: 20110221
  Transmission Date: 20110831
  Serious: Yes (Death, Life-Threatening, Hospitalization)
  Sender: FDA-Public Use
  Company Number: B0652792A

PATIENT
  Sex: Female
  Weight: 87 kg

DRUGS (4)
  1. XELODA [Concomitant]
     Dosage: 2400MG PER DAY
     Route: 048
     Dates: start: 20090819, end: 20090902
  2. MUCOSTA [Concomitant]
     Indication: GASTRITIS PROPHYLAXIS
     Route: 048
     Dates: start: 20090819, end: 20090902
  3. TYKERB [Suspect]
     Indication: BREAST CANCER
     Dosage: 1250MG PER DAY
     Route: 048
     Dates: start: 20090819, end: 20090902
  4. LOXONIN [Suspect]
     Indication: CANCER PAIN
     Route: 048
     Dates: start: 20090819, end: 20090902

REACTIONS (5)
  - DEEP VEIN THROMBOSIS [None]
  - GASTRIC ULCER HAEMORRHAGE [None]
  - PULMONARY THROMBOSIS [None]
  - OEDEMA PERIPHERAL [None]
  - ANAEMIA [None]
